FAERS Safety Report 6348712-7 (Version None)
Quarter: 2009Q3

REPORT INFORMATION
  Report Type: 
  Country: None (occurrence: None)
  Receive Date: 20090911
  Receipt Date: 20090902
  Transmission Date: 20100115
  Serious: Yes (Hospitalization, Other)
  Sender: FDA-Public Use
  Company Number: PHHY2009CA32357

PATIENT
  Sex: Female

DRUGS (2)
  1. CLOZARIL [Suspect]
     Indication: SCHIZOPHRENIA, PARANOID TYPE
     Dosage: UNK
     Dates: start: 19921019, end: 20090313
  2. CLOZARIL [Suspect]
     Dosage: 150 MG, UNK

REACTIONS (6)
  - ANXIETY [None]
  - BLOOD TEST ABNORMAL [None]
  - DISEASE RECURRENCE [None]
  - HALLUCINATIONS, MIXED [None]
  - MENTAL DISORDER [None]
  - THERAPY CESSATION [None]
